FAERS Safety Report 6755291-9 (Version None)
Quarter: 2010Q2

REPORT INFORMATION
  Report Type: 
  Country: None (occurrence: None)
  Receive Date: 20100602
  Receipt Date: 20100520
  Transmission Date: 20101027
  Serious: Yes (Death)
  Sender: FDA-Public Use
  Company Number: 2010-1706

PATIENT
  Age: 59 Year
  Sex: Male

DRUGS (1)
  1. SOMATULINE AUTOGEL 120 MG (SOMATULINE SR) (LANREOTIDE) (LANREOTIDE ACE [Suspect]
     Indication: ACROMEGALY
     Dosage: (120 MG, 1 IN 1 M), SUBCUTANEOUS
     Route: 058
     Dates: start: 20081201, end: 20090801

REACTIONS (2)
  - MYOCARDIAL INFARCTION [None]
  - TREATMENT NONCOMPLIANCE [None]
